FAERS Safety Report 9925175 (Version 1)
Quarter: 2014Q1

REPORT INFORMATION
  Report Type: Spontaneous
  Country: US (occurrence: None)
  Receive Date: 20140225
  Receipt Date: 20140225
  Transmission Date: 20141002
  Serious: Yes (Other)
  Sender: FDA-Public Use
  Company Number: None

PATIENT
  Age: 52 Year
  Sex: Male
  Weight: 60.5 kg

DRUGS (2)
  1. CYTARABINE [Suspect]
     Dates: start: 20140210
  2. IDARUBICIN [Suspect]
     Dates: start: 20140209

REACTIONS (7)
  - Depressed level of consciousness [None]
  - Septic shock [None]
  - Product contamination microbial [None]
  - Septic embolus [None]
  - Brain oedema [None]
  - Brain herniation [None]
  - Pupil fixed [None]
